FAERS Safety Report 8762040 (Version 2)
Quarter: 2012Q4

REPORT INFORMATION
  Report Type: 
  Country: US (occurrence: US)
  Receive Date: 20120828
  Receipt Date: 20120907
  Transmission Date: 20130627
  Serious: Yes (Other)
  Sender: FDA-Public Use
  Company Number: US-PFIZER INC-2012208726

PATIENT
  Age: 45 Year
  Sex: Female
  Weight: 88.89 kg

DRUGS (8)
  1. GEODON [Suspect]
     Indication: SCHIZOAFFECTIVE DISORDER
     Dosage: UNK, 2x/day
     Route: 048
  2. CYMBALTA [Suspect]
     Indication: FIBROMYALGIA
     Dosage: UNK
     Dates: end: 201205
  3. TOPAMAX [Suspect]
     Indication: MIGRAINE
     Dosage: UNK
  4. TOPAMAX [Suspect]
     Dosage: UNK (dose of wean off)
  5. ZYPREXA [Concomitant]
     Indication: SCHIZOAFFECTIVE DISORDER
     Dosage: UNK
  6. ATIVAN [Concomitant]
     Dosage: UNK, as needed
  7. BENADRYL [Concomitant]
     Dosage: UNK, as needed
  8. TRAZODONE [Concomitant]
     Indication: SLEEP DISORDER
     Dosage: UNK

REACTIONS (8)
  - Glaucoma [Unknown]
  - Liver function test abnormal [Unknown]
  - Gastrooesophageal reflux disease [Unknown]
  - Rhinorrhoea [Not Recovered/Not Resolved]
  - Rhinitis [Not Recovered/Not Resolved]
  - Abdominal discomfort [Unknown]
  - Somnolence [Not Recovered/Not Resolved]
  - Migraine [Unknown]
